FAERS Safety Report 9767371 (Version 3)
Quarter: 2014Q1

REPORT INFORMATION
  Report Type: Report from Study
  Country: FR (occurrence: FR)
  Receive Date: 20131217
  Receipt Date: 20140110
  Transmission Date: 20141002
  Serious: Yes (Death, Hospitalization)
  Sender: FDA-Public Use
  Company Number: FR-PFIZER INC-2013358427

PATIENT
  Age: 38 Year
  Sex: Female

DRUGS (4)
  1. RAPAMUNE [Suspect]
     Indication: PROPHYLAXIS
     Dosage: 7 MG, 1X/DAY
     Route: 048
     Dates: start: 20070803, end: 20090330
  2. CICLOSPORIN [Concomitant]
     Dosage: 20 MG, DAILY
     Dates: end: 20090422
  3. MOPRAL [Concomitant]
     Dosage: 40 MG, DAILY
  4. SOLU-MEDROL [Concomitant]
     Dosage: 10 MG, DAILY

REACTIONS (4)
  - Intestinal ischaemia [Fatal]
  - Multi-organ failure [Fatal]
  - Peritonitis [Fatal]
  - Sepsis [Fatal]
